FAERS Safety Report 11825587 (Version 7)
Quarter: 2017Q3

REPORT INFORMATION
  Report Type: Spontaneous
  Country: US (occurrence: US)
  Receive Date: 20151211
  Receipt Date: 20170704
  Transmission Date: 20171127
  Serious: Yes (Other)
  Sender: FDA-Public Use
  Company Number: US-JNJFOC-20150716884

PATIENT
  Age: 73 Year
  Sex: Female

DRUGS (21)
  1. IMBRUVICA [Suspect]
     Active Substance: IBRUTINIB
     Indication: CHRONIC LYMPHOCYTIC LEUKAEMIA
     Route: 048
     Dates: start: 20161102
  2. MELOXICAM. [Concomitant]
     Active Substance: MELOXICAM
  3. ATENOLOL. [Concomitant]
     Active Substance: ATENOLOL
  4. IMBRUVICA [Suspect]
     Active Substance: IBRUTINIB
     Indication: CHRONIC LYMPHOCYTIC LEUKAEMIA
     Route: 048
     Dates: start: 20140820
  5. PEPTO-BISMOL [Concomitant]
     Active Substance: BISMUTH SUBSALICYLATE
  6. PROTONIX [Concomitant]
     Active Substance: PANTOPRAZOLE SODIUM
  7. GABAPENTIN. [Concomitant]
     Active Substance: GABAPENTIN
  8. OXYCODONE [Concomitant]
     Active Substance: OXYCODONE
  9. LYSINE [Concomitant]
     Active Substance: LYSINE
  10. IMBRUVICA [Suspect]
     Active Substance: IBRUTINIB
     Indication: CHRONIC LYMPHOCYTIC LEUKAEMIA
     Route: 048
     Dates: start: 20140815
  11. AMLODIPINE [Concomitant]
     Active Substance: AMLODIPINE BESYLATE
  12. PEPCID [Concomitant]
     Active Substance: FAMOTIDINE
  13. TORADOL [Concomitant]
     Active Substance: KETOROLAC TROMETHAMINE
  14. VITAMIN D [Concomitant]
     Active Substance: CHOLECALCIFEROL
  15. LORATADINE. [Concomitant]
     Active Substance: LORATADINE
  16. MAGNESIUM [Concomitant]
     Active Substance: MAGNESIUM
  17. LISINOPRIL. [Concomitant]
     Active Substance: LISINOPRIL
  18. VALTREX [Concomitant]
     Active Substance: VALACYCLOVIR HYDROCHLORIDE
  19. ASPIRIN. [Concomitant]
     Active Substance: ASPIRIN
  20. LYRICA [Concomitant]
     Active Substance: PREGABALIN
  21. PANTOPRAZOLE SODIUM. [Concomitant]
     Active Substance: PANTOPRAZOLE SODIUM

REACTIONS (25)
  - Hip arthroplasty [Unknown]
  - Haematochezia [Unknown]
  - Pelvic deformity [Unknown]
  - Diarrhoea [Not Recovered/Not Resolved]
  - Neuralgia [Unknown]
  - Procedural hypertension [Unknown]
  - Sciatica [Not Recovered/Not Resolved]
  - Paraesthesia [Unknown]
  - Groin pain [Not Recovered/Not Resolved]
  - Gastrooesophageal reflux disease [Not Recovered/Not Resolved]
  - Haemorrhoids [Unknown]
  - Dizziness [Unknown]
  - Gait disturbance [Not Recovered/Not Resolved]
  - Procedural pain [Unknown]
  - Pain in extremity [Not Recovered/Not Resolved]
  - Nausea [Unknown]
  - Myalgia [Unknown]
  - Intervertebral disc protrusion [Unknown]
  - Muscle strain [Unknown]
  - Pelvic pain [Not Recovered/Not Resolved]
  - Cough [Unknown]
  - Cardiac operation [Recovered/Resolved]
  - Nasopharyngitis [Unknown]
  - Nerve compression [Unknown]
  - Muscle spasms [Unknown]

NARRATIVE: CASE EVENT DATE: 201502
